FAERS Safety Report 18473386 (Version 10)
Quarter: 2022Q1

REPORT INFORMATION
  Report Type: Report from Study
  Country: US (occurrence: US)
  Receive Date: 20201106
  Receipt Date: 20220131
  Transmission Date: 20220424
  Serious: Yes (Hospitalization, Other)
  Sender: FDA-Public Use
  Company Number: US-ACADIA PHARMACEUTICALS INC.-ACA-2019-014741

PATIENT
  Age: 62 Year
  Sex: Female

DRUGS (15)
  1. NUPLAZID [Suspect]
     Active Substance: PIMAVANSERIN TARTRATE
     Indication: Parkinson^s disease psychosis
     Dosage: 34 MG, QD
     Route: 048
  2. TYLENOL [Concomitant]
     Active Substance: ACETAMINOPHEN
  3. LEVOCETIRIZINE DIHYDROCHLORIDE [Concomitant]
     Active Substance: LEVOCETIRIZINE DIHYDROCHLORIDE
  4. CLONAZEPAM [Concomitant]
     Active Substance: CLONAZEPAM
  5. DULCOLAX (BISACODYL) [Concomitant]
     Active Substance: BISACODYL
  6. LEXAPRO [Concomitant]
     Active Substance: ESCITALOPRAM OXALATE
  7. NAPROXEN [Concomitant]
     Active Substance: NAPROXEN
  8. OXYBUTYNIN [Concomitant]
     Active Substance: OXYBUTYNIN
  9. SINEMET [Concomitant]
     Active Substance: CARBIDOPA\LEVODOPA
  10. VITAMIN B12 [Concomitant]
     Active Substance: CYANOCOBALAMIN
  11. DONEPEZIL [Concomitant]
     Active Substance: DONEPEZIL
  12. MELATONIN [Concomitant]
     Active Substance: MELATONIN
  13. MIRALAX [Concomitant]
     Active Substance: POLYETHYLENE GLYCOL 3350
  14. TRAMADOL [Concomitant]
     Active Substance: TRAMADOL
  15. NAPROTEC [Concomitant]

REACTIONS (14)
  - Urinary tract infection [Recovered/Resolved]
  - Blood pressure decreased [Unknown]
  - Blood pressure decreased [Not Recovered/Not Resolved]
  - Abnormal behaviour [Unknown]
  - Syncope [Unknown]
  - Blood pressure decreased [Unknown]
  - Urinary tract infection [Unknown]
  - Arthralgia [Unknown]
  - Urinary tract infection [Unknown]
  - Scan brain [Unknown]
  - Loss of personal independence in daily activities [Not Recovered/Not Resolved]
  - Dysstasia [Not Recovered/Not Resolved]
  - Urinary tract infection [Unknown]
  - Fall [Unknown]

NARRATIVE: CASE EVENT DATE: 20201026
